FAERS Safety Report 16281059 (Version 1)
Quarter: 2019Q2

REPORT INFORMATION
  Report Type: Spontaneous
  Country: FR (occurrence: FR)
  Receive Date: 20190507
  Receipt Date: 20190507
  Transmission Date: 20190711
  Serious: Yes (Hospitalization)
  Sender: FDA-Public Use
  Company Number: FR-FERRINGPH-2019FE02350

PATIENT

DRUGS (4)
  1. LARGACTIL                          /00011901/ [Suspect]
     Active Substance: CHLORPROMAZINE
     Indication: PREMEDICATION
     Dosage: 1, ONCE/SINGLE
     Route: 065
     Dates: start: 20190401, end: 20190401
  2. MINIRIN [Suspect]
     Active Substance: DESMOPRESSIN ACETATE
     Indication: POLYDIPSIA
     Dosage: 30 ?G, 1 TIME DAILY
     Route: 045
     Dates: start: 20190307, end: 20190404
  3. BUCCOLAM [Concomitant]
     Active Substance: MIDAZOLAM HYDROCHLORIDE
     Indication: PREMEDICATION
     Dosage: 1 UNK, ONCE/SINGLE
     Route: 065
     Dates: start: 20190401, end: 20190401
  4. CELESTENE                          /00008501/ [Concomitant]
     Active Substance: BETAMETHASONE
     Indication: LARYNGITIS
     Dosage: 165 GTT, 1 TIME DAILY
     Route: 048
     Dates: start: 20190401, end: 20190404

REACTIONS (7)
  - Musculoskeletal stiffness [Recovered/Resolved]
  - Somnolence [Recovered/Resolved]
  - Hyponatraemia [Recovered/Resolved]
  - Off label use [Recovered/Resolved]
  - Vomiting [Recovered/Resolved]
  - Contraindicated product administered [Recovered/Resolved]
  - Product use in unapproved indication [Recovered/Resolved]

NARRATIVE: CASE EVENT DATE: 20190402
